FAERS Safety Report 12382517 (Version 1)
Quarter: 2016Q2

REPORT INFORMATION
  Report Type: Report from Study
  Country: US (occurrence: US)
  Receive Date: 20160518
  Receipt Date: 20160518
  Transmission Date: 20160815
  Serious: No
  Sender: FDA-Public Use
  Company Number: US-MALLINCKRODT-T201503158

PATIENT
  Age: 49 Year
  Sex: Female

DRUGS (4)
  1. REPOSITORY CORTICOTROPIN INJECTION [Suspect]
     Active Substance: CORTICOTROPIN
     Dosage: 80 UNITS WEEKLY
     Route: 058
     Dates: start: 20160122
  2. BENLYSTA [Concomitant]
     Active Substance: BELIMUMAB
     Dosage: UNK DOSE, ONCE MONTHLY
  3. REPOSITORY CORTICOTROPIN INJECTION [Suspect]
     Active Substance: CORTICOTROPIN
     Dosage: 80 UNITS ONCE WEEKLY ON FRIDAY
     Route: 058
     Dates: start: 20140615
  4. REPOSITORY CORTICOTROPIN INJECTION [Suspect]
     Active Substance: CORTICOTROPIN
     Indication: SYSTEMIC LUPUS ERYTHEMATOSUS
     Dosage: 80 UNITS TWICE WKLY
     Route: 058
     Dates: start: 20140615, end: 201510

REACTIONS (14)
  - Injection site pain [Recovered/Resolved]
  - Gastrointestinal surgery [Recovered/Resolved]
  - Influenza [Not Recovered/Not Resolved]
  - Musculoskeletal pain [Not Recovered/Not Resolved]
  - Peripheral swelling [Recovered/Resolved]
  - Neck pain [Not Recovered/Not Resolved]
  - Injection site swelling [Recovered/Resolved]
  - Feeling abnormal [Recovered/Resolved]
  - Pain [Not Recovered/Not Resolved]
  - Feeling jittery [Recovered/Resolved]
  - Headache [Not Recovered/Not Resolved]
  - Shoulder operation [Recovered/Resolved]
  - Injection site erythema [Recovered/Resolved]
  - Palpitations [Not Recovered/Not Resolved]

NARRATIVE: CASE EVENT DATE: 20160122
